FAERS Safety Report 5236277-2 (Version None)
Quarter: 2007Q1

REPORT INFORMATION
  Report Type: 
  Country: None (occurrence: None)
  Receive Date: 20070212
  Receipt Date: 20070206
  Transmission Date: 20070707
  Serious: Yes (Hospitalization)
  Sender: FDA-Public Use
  Company Number: US-BOEHRINGER INGELHEIM PHARMACEUTICALS, INC.-2007-DE-00732GD

PATIENT

DRUGS (3)
  1. IPRATROPIUM BROMIDE [Suspect]
     Indication: STATUS ASTHMATICUS
     Dosage: 250 MCG FOR CHILDREN {10 KG; 500 MCG FOR CHILDREN }10 KG
     Route: 055
  2. ALBUTEROL [Suspect]
     Indication: STATUS ASTHMATICUS
     Dosage: 2.5 MG FOR CHILDREN {10 KG; 5 MG FOR CHILDREN }10 KG
     Route: 055
  3. CORTICOSTEROIDS [Suspect]
     Indication: STATUS ASTHMATICUS
     Dosage: 2 MG/KG, MAXIMUM 80 MG

REACTIONS (1)
  - DRUG INEFFECTIVE [None]
